FAERS Safety Report 12587193 (Version 2)
Quarter: 2016Q3

REPORT INFORMATION
  Report Type: Report from Study
  Country: JP (occurrence: JP)
  Receive Date: 20160725
  Receipt Date: 20160916
  Transmission Date: 20161109
  Serious: Yes (Hospitalization)
  Sender: FDA-Public Use
  Company Number: JP-ACTELION-A-CH2016-139457

PATIENT
  Age: 48 Year
  Sex: Male

DRUGS (25)
  1. EPOPROSTENOL ACT [Suspect]
     Active Substance: EPOPROSTENOL
     Dosage: 33.4 NG/KG, PER MIN
     Route: 042
     Dates: start: 20140326
  2. VOLIBRIS [Suspect]
     Active Substance: AMBRISENTAN
     Indication: PULMONARY ARTERIAL HYPERTENSION
     Dosage: 5 MG, QD
     Route: 048
     Dates: start: 20130902, end: 20130924
  3. AZELNIDIPINE [Concomitant]
     Active Substance: AZELNIDIPINE
  4. WARFARIN [Concomitant]
     Active Substance: WARFARIN
  5. LANSOPRAZOLE. [Concomitant]
     Active Substance: LANSOPRAZOLE
  6. OXYGEN. [Concomitant]
     Active Substance: OXYGEN
  7. TRACLEER [Suspect]
     Active Substance: BOSENTAN
     Indication: PULMONARY ARTERIAL HYPERTENSION
     Dosage: 125 MG, QD
     Route: 048
     Dates: start: 20140420, end: 20140424
  8. AZOSEMIDE [Concomitant]
     Active Substance: AZOSEMIDE
  9. SPIRONOLACTONE. [Concomitant]
     Active Substance: SPIRONOLACTONE
  10. EPOPROSTENOL ACT [Suspect]
     Active Substance: EPOPROSTENOL
     Dosage: 38.75 NG/KG, PER MIN
     Route: 042
     Dates: start: 20140704
  11. VOLIBRIS [Suspect]
     Active Substance: AMBRISENTAN
     Dosage: 5 MG, BID
     Route: 048
     Dates: start: 20131001, end: 20131119
  12. EPOPROSTENOL ACT [Suspect]
     Active Substance: EPOPROSTENOL
     Dosage: 16.0 NG/KG, PER MIN
     Route: 042
     Dates: start: 20130919
  13. EPOPROSTENOL ACT [Suspect]
     Active Substance: EPOPROSTENOL
     Dosage: 30 NG/KG, PER MIN
     Route: 042
     Dates: start: 20140128
  14. EPOPROSTENOL ACT [Suspect]
     Active Substance: EPOPROSTENOL
     Dosage: 35.0 NG/KG, PER MIN
     Route: 042
     Dates: start: 20140425
  15. TADALAFIL [Concomitant]
     Active Substance: TADALAFIL
  16. EPOPROSTENOL ACT [Suspect]
     Active Substance: EPOPROSTENOL
     Dosage: 28.3 NG/KG, PER MIN
     Route: 042
     Dates: start: 20131120
  17. EPOPROSTENOL ACT [Suspect]
     Active Substance: EPOPROSTENOL
     Dosage: 29.1 NG/KG, PER MIN
     Route: 042
     Dates: start: 20131218
  18. VOLIBRIS [Suspect]
     Active Substance: AMBRISENTAN
     Dosage: 7.5 MG, QD
     Route: 048
     Dates: start: 20130925, end: 20130930
  19. EPOPROSTENOL ACT [Suspect]
     Active Substance: EPOPROSTENOL
     Indication: PULMONARY ARTERIAL HYPERTENSION
     Dosage: 0.25 NG/KG, PER MIN
     Route: 042
     Dates: start: 20130822
  20. EPOPROSTENOL ACT [Suspect]
     Active Substance: EPOPROSTENOL
     Dosage: 27.5 NG/KG, PER MIN
     Route: 042
     Dates: start: 20131016
  21. EPOPROSTENOL ACT [Suspect]
     Active Substance: EPOPROSTENOL
     Dosage: 40.0 NG/KG, PER MIN
     Route: 042
     Dates: start: 20140813
  22. DOBUTAMINE [Concomitant]
     Active Substance: DOBUTAMINE\DOBUTAMINE HYDROCHLORIDE
  23. EPOPROSTENOL ACT [Suspect]
     Active Substance: EPOPROSTENOL
     Dosage: 31.6 NG/KG, PER MIN
     Route: 042
     Dates: start: 20140226
  24. EPOPROSTENOL ACT [Suspect]
     Active Substance: EPOPROSTENOL
     Dosage: 37.5 NG/KG, PER MIN
     Route: 042
     Dates: start: 20140613
  25. VOLIBRIS [Suspect]
     Active Substance: AMBRISENTAN
     Dosage: 2.5 MG, BID
     Route: 048
     Dates: start: 20131120, end: 20140419

REACTIONS (18)
  - Concomitant disease aggravated [Recovered/Resolved]
  - Pain in jaw [Recovering/Resolving]
  - Anaemia [Recovering/Resolving]
  - Arthralgia [Recovered/Resolved]
  - Pyrexia [Recovered/Resolved]
  - Urticaria [Recovered/Resolved]
  - Red blood cell count decreased [Recovering/Resolving]
  - Swelling face [Recovered/Resolved]
  - Toothache [Recovered/Resolved]
  - Diarrhoea [Recovering/Resolving]
  - Haemoglobin decreased [Recovering/Resolving]
  - Haematocrit decreased [Recovering/Resolving]
  - Hot flush [Recovering/Resolving]
  - Hypertension [Not Recovered/Not Resolved]
  - Headache [Recovered/Resolved]
  - Rash [Recovered/Resolved]
  - Device related infection [Recovering/Resolving]
  - Drug eruption [Unknown]

NARRATIVE: CASE EVENT DATE: 20130824
